FAERS Safety Report 20533599 (Version 1)
Quarter: 2022Q1

REPORT INFORMATION
  Report Type: Spontaneous
  Country: CN (occurrence: CN)
  Receive Date: 20220301
  Receipt Date: 20220301
  Transmission Date: 20220423
  Serious: Yes (Hospitalization, Other)
  Sender: FDA-Public Use
  Company Number: CN-009507513-2202CHN007925

PATIENT
  Age: 68 Year
  Sex: Male
  Weight: 98 kg

DRUGS (3)
  1. KEYTRUDA [Suspect]
     Active Substance: PEMBROLIZUMAB
     Indication: Lung neoplasm malignant
     Dosage: 200 MG, ONCE
     Route: 041
     Dates: start: 20220114, end: 20220114
  2. PARAPLATIN [Suspect]
     Active Substance: CARBOPLATIN
     Indication: Lung neoplasm malignant
     Dosage: 660 MG, ONCE
     Route: 041
     Dates: start: 20220114, end: 20220114
  3. PEMETREXED DISODIUM [Suspect]
     Active Substance: PEMETREXED DISODIUM
     Indication: Lung neoplasm malignant
     Dosage: 0.2 GRAM, ONCE
     Route: 041
     Dates: start: 20220114, end: 20220114

REACTIONS (2)
  - Lung neoplasm malignant [Unknown]
  - Pigmentation disorder [Recovering/Resolving]

NARRATIVE: CASE EVENT DATE: 20220209
